FAERS Safety Report 16092168 (Version 1)
Quarter: 2019Q1

REPORT INFORMATION
  Report Type: Spontaneous
  Country: CO (occurrence: CO)
  Receive Date: 20190319
  Receipt Date: 20190319
  Transmission Date: 20190418
  Serious: Yes (Other)
  Sender: FDA-Public Use
  Company Number: CO-NAPPMUNDI-GBR-2019-0065246

PATIENT
  Age: 80 Year
  Sex: Female

DRUGS (1)
  1. NORSPAN [Suspect]
     Active Substance: BUPRENORPHINE
     Indication: PAIN
     Dosage: 10 MCG, Q1H (STRENGTH 10MG)
     Route: 062

REACTIONS (1)
  - Delirium [Recovered/Resolved]
